FAERS Safety Report 22059317 (Version 1)
Quarter: 2023Q1

REPORT INFORMATION
  Report Type: Spontaneous
  Country: CN (occurrence: None)
  Receive Date: 20230303
  Receipt Date: 20230303
  Transmission Date: 20230417
  Serious: Yes (Life-Threatening, Other)
  Sender: FDA-Public Use
  Company Number: 2023A050843

PATIENT
  Sex: Male
  Weight: 55 kg

DRUGS (2)
  1. TAGRISSO [Suspect]
     Active Substance: OSIMERTINIB
     Indication: Non-small cell lung cancer
     Route: 048
     Dates: start: 20221011, end: 20230217
  2. GEFITINIB [Concomitant]
     Active Substance: GEFITINIB
     Indication: Pain

REACTIONS (1)
  - Myelosuppression [Unknown]
